FAERS Safety Report 5335832-9 (Version None)
Quarter: 2007Q2

REPORT INFORMATION
  Report Type: 
  Country: None (occurrence: None)
  Receive Date: 20070320
  Receipt Date: 20060407
  Transmission Date: 20071010
  Serious: Yes (Other)
  Sender: FDA-Public Use
  Company Number: 145256USA

PATIENT
  Age: 61 Year
  Sex: Female

DRUGS (1)
  1. CEPHALEXIN [Suspect]
     Indication: THERAPEUTIC PROCEDURE
     Dosage: 2000 MG (500 MG,FOUR TIMES A DAY), ORAL
     Route: 048
     Dates: start: 20060109, end: 20060117

REACTIONS (2)
  - HYPERSENSITIVITY [None]
  - URTICARIA [None]
